FAERS Safety Report 16674132 (Version 2)
Quarter: 2019Q3

REPORT INFORMATION
  Report Type: Report from Study
  Country: BR (occurrence: BR)
  Receive Date: 20190806
  Receipt Date: 20190812
  Transmission Date: 20191004
  Serious: Yes (Other)
  Sender: FDA-Public Use
  Company Number: BR-UCBSA-2019032176

PATIENT
  Sex: Female
  Weight: 80 kg

DRUGS (6)
  1. LEVETIRACETAM. [Suspect]
     Active Substance: LEVETIRACETAM
     Indication: SEIZURE
     Dosage: 500 MILLIGRAM, 2X/DAY (BID)
     Route: 048
     Dates: start: 2017
  2. RIVOTRIL [Concomitant]
     Active Substance: CLONAZEPAM
     Indication: SEIZURE
  3. LEVETIRACETAM. [Suspect]
     Active Substance: LEVETIRACETAM
     Dosage: 750 MILLIGRAM, 2X/DAY (BID)
     Route: 048
  4. SERTRALINE HYDROCHLORIDE. [Concomitant]
     Active Substance: SERTRALINE HYDROCHLORIDE
     Indication: DEPRESSION
     Dosage: 50 MILLIGRAM, 2X/DAY (BID)
     Route: 048
     Dates: start: 2013
  5. GARDENAL [PHENOBARBITAL SODIUM] [Concomitant]
     Active Substance: PHENOBARBITAL SODIUM
     Indication: SEIZURE
     Dosage: 100 MILLIGRAM, ONCE DAILY (QD)
     Route: 048
     Dates: start: 2013
  6. RIVOTRIL [Concomitant]
     Active Substance: CLONAZEPAM
     Indication: DEPRESSION
     Dosage: 2 MILLIGRAM, 2X/DAY (BID)
     Route: 048
     Dates: start: 2013

REACTIONS (4)
  - Seizure [Recovered/Resolved]
  - Aura [Recovering/Resolving]
  - Labyrinthitis [Recovering/Resolving]
  - Weight increased [Recovered/Resolved]

NARRATIVE: CASE EVENT DATE: 2018
